FAERS Safety Report 9363193 (Version 1)
Quarter: 2013Q2

REPORT INFORMATION
  Report Type: Report from Study
  Country: DE (occurrence: DE)
  Receive Date: 20130624
  Receipt Date: 20130624
  Transmission Date: 20140414
  Serious: No
  Sender: FDA-Public Use
  Company Number: PHHY2013DE060599

PATIENT
  Sex: Male

DRUGS (8)
  1. AMN107 [Suspect]
     Indication: CHRONIC MYELOID LEUKAEMIA
     Dosage: 600 MG, QD
     Route: 048
     Dates: start: 20130221, end: 20130224
  2. AMN107 [Suspect]
     Dosage: 0 MG, QD
     Route: 048
     Dates: start: 20130225, end: 20130306
  3. AMN107 [Suspect]
     Dosage: 300 MG, QD
     Route: 048
     Dates: start: 20130307, end: 20130320
  4. AMN107 [Suspect]
     Dosage: 450 MG, QD
     Route: 048
     Dates: start: 20130321, end: 20130414
  5. AMN107 [Suspect]
     Dosage: 600 MG, QD
     Route: 048
     Dates: start: 20130415
  6. IBUPROFEN [Concomitant]
     Dosage: 75 MG, UNK
     Dates: start: 2012, end: 20130307
  7. OMEPRAZOLE [Concomitant]
     Dosage: 20 MG, UNK
     Dates: start: 2012
  8. FENTANYL [Concomitant]
     Dosage: 50 UG/HR, UNK
     Dates: start: 20130307

REACTIONS (3)
  - Nausea [Recovered/Resolved]
  - Pruritus [Unknown]
  - Abdominal discomfort [Recovered/Resolved]
